FAERS Safety Report 8021110 (Version 2)
Quarter: 2012Q4

REPORT INFORMATION
  Report Type: Report from Study
  Country: IT (occurrence: IT)
  Receive Date: 20110705
  Receipt Date: 20120905
  Transmission Date: 20130627
  Serious: Yes (Hospitalization)
  Sender: FDA-Public Use
  Company Number: IT-ROCHE-784768

PATIENT
  Age: 56 Year
  Sex: Female

DRUGS (2)
  1. HERCEPTIN [Suspect]
     Indication: BREAST CANCER
     Route: 042
     Dates: start: 20080917, end: 20081124
  2. FEMARA [Concomitant]
     Route: 048
     Dates: start: 20080317, end: 20081124

REACTIONS (1)
  - Acute myocardial infarction [Recovering/Resolving]
